FAERS Safety Report 8178751-5 (Version None)
Quarter: 2012Q1

REPORT INFORMATION
  Report Type: 
  Country: None (occurrence: None)
  Receive Date: 20120301
  Receipt Date: 20120301
  Transmission Date: 20120608
  Serious: Yes (Other)
  Sender: FDA-Public Use
  Company Number: None

PATIENT
  Age: 50 Year
  Sex: Female
  Weight: 86 kg

DRUGS (3)
  1. ELOXATIN [Concomitant]
  2. ELOXATIN [Suspect]
     Indication: COLON CANCER
     Dosage: 130MG
     Route: 041
     Dates: start: 20120207, end: 20120207
  3. FOLFOX REGIMEN [Concomitant]

REACTIONS (4)
  - FLUSHING [None]
  - SLUGGISHNESS [None]
  - RASH [None]
  - INFUSION RELATED REACTION [None]
